FAERS Safety Report 15468865 (Version 2)
Quarter: 2021Q3

REPORT INFORMATION
  Report Type: Report from Study
  Country: CA (occurrence: CA)
  Receive Date: 20181005
  Receipt Date: 20210831
  Transmission Date: 20211014
  Serious: Yes (Other)
  Sender: FDA-Public Use
  Company Number: CA-GLAXOSMITHKLINE-CA2018GSK180791

PATIENT
  Age: 44 Year
  Sex: Male

DRUGS (3)
  1. SYMBICORT [Suspect]
     Active Substance: BUDESONIDE\FORMOTEROL FUMARATE DIHYDRATE
     Indication: PRODUCT USED FOR UNKNOWN INDICATION
     Dosage: UNK
  2. SPIRIVA RESPIMAT [Suspect]
     Active Substance: TIOTROPIUM BROMIDE
     Indication: PRODUCT USED FOR UNKNOWN INDICATION
     Dosage: UNK
  3. SALBUTAMOL SULPHATE [Suspect]
     Active Substance: ALBUTEROL SULFATE
     Indication: PRODUCT USED FOR UNKNOWN INDICATION
     Dosage: UNK

REACTIONS (5)
  - Nasopharyngitis [Unknown]
  - Blood count abnormal [Unknown]
  - Therapeutic product effect incomplete [Unknown]
  - Asthma [Unknown]
  - Reversible airways obstruction [Unknown]

NARRATIVE: CASE EVENT DATE: 201807
